FAERS Safety Report 11158973 (Version 1)
Quarter: 2015Q2

REPORT INFORMATION
  Report Type: Spontaneous
  Country: US (occurrence: US)
  Receive Date: 20150603
  Receipt Date: 20150603
  Transmission Date: 20150821
  Serious: No
  Sender: FDA-Public Use
  Company Number: US-TEVA-508619USA

PATIENT
  Age: 44 Year
  Sex: Female

DRUGS (3)
  1. FENTANYL CITRATE. [Suspect]
     Active Substance: FENTANYL CITRATE
     Indication: SYRINGOMYELIA
     Dosage: 6400 MICROGRAM DAILY; 1 LOZENGE 8 TIMES A DAY
     Route: 048
     Dates: start: 20140825
  2. LYRICA [Concomitant]
     Active Substance: PREGABALIN
  3. FENTANYL. [Concomitant]
     Active Substance: FENTANYL

REACTIONS (2)
  - Product use issue [Unknown]
  - Drug ineffective [Unknown]
